FAERS Safety Report 6875758-2 (Version None)
Quarter: 2010Q3

REPORT INFORMATION
  Report Type: 
  Country: None (occurrence: None)
  Receive Date: 20100727
  Receipt Date: 20100714
  Transmission Date: 20110219
  Serious: Yes (Other)
  Sender: FDA-Public Use
  Company Number: US-PFIZER INC-2009216798

PATIENT
  Sex: Female
  Weight: 78.458 kg

DRUGS (9)
  1. CHANTIX [Suspect]
     Indication: SMOKING CESSATION THERAPY
     Dosage: 1 MG, 2X/DAY
     Dates: start: 20090401
  2. REGLAN [Concomitant]
     Dosage: UNK
  3. LASIX [Concomitant]
     Dosage: UNK
  4. DIAZIDE [Concomitant]
     Dosage: UNK
  5. THYROID TAB [Concomitant]
     Dosage: UNK
  6. LODINE [Concomitant]
     Dosage: UNK
  7. FIORICET [Concomitant]
     Indication: MIGRAINE
     Dosage: UNK
  8. MULTI-VITAMINS [Concomitant]
     Dosage: UNK
  9. MINERALS NOS [Concomitant]
     Dosage: UNK

REACTIONS (3)
  - AMNESIA [None]
  - GENERAL PHYSICAL HEALTH DETERIORATION [None]
  - MUSCULAR WEAKNESS [None]
